FAERS Safety Report 12192382 (Version 1)
Quarter: 2016Q1

REPORT INFORMATION
  Report Type: Spontaneous
  Country: US (occurrence: US)
  Receive Date: 20160318
  Receipt Date: 20160318
  Transmission Date: 20160526
  Serious: Yes (Hospitalization, Other)
  Sender: FDA-Public Use
  Company Number: US-MYLANLABS-2016M1011475

PATIENT

DRUGS (1)
  1. LEVETIRACETAM. [Suspect]
     Active Substance: LEVETIRACETAM
     Indication: SEIZURE
     Dosage: 1500 MG, BID

REACTIONS (6)
  - Wrist fracture [Not Recovered/Not Resolved]
  - Abdominal injury [Recovered/Resolved]
  - Head injury [Recovered/Resolved]
  - Toothache [Not Recovered/Not Resolved]
  - Fall [Recovered/Resolved]
  - Concussion [Recovered/Resolved]

NARRATIVE: CASE EVENT DATE: 201412
